FAERS Safety Report 19331313 (Version 2)
Quarter: 2021Q3

REPORT INFORMATION
  Report Type: Spontaneous
  Country: AT (occurrence: AT)
  Receive Date: 20210528
  Receipt Date: 20210825
  Transmission Date: 20211014
  Serious: Yes (Hospitalization)
  Sender: FDA-Public Use
  Company Number: AT-ELI_LILLY_AND_COMPANY-AT202105007400

PATIENT
  Age: 57 Year
  Sex: Male
  Weight: 85.9 kg

DRUGS (3)
  1. TALTZ [Suspect]
     Active Substance: IXEKIZUMAB
     Dosage: UNK
     Route: 065
  2. TALTZ [Suspect]
     Active Substance: IXEKIZUMAB
     Indication: PSORIASIS
     Dosage: UNK, UNKNOWN
     Route: 065
     Dates: start: 20170516
  3. TALTZ [Suspect]
     Active Substance: IXEKIZUMAB
     Dosage: UNK
     Route: 065

REACTIONS (8)
  - Erysipelas [Recovered/Resolved]
  - Coronary artery disease [Unknown]
  - Acute myocardial infarction [Unknown]
  - Influenza [Recovered/Resolved]
  - Bacterial infection [Unknown]
  - Infection [Recovered/Resolved]
  - Psoriasis [Recovered/Resolved]
  - Viral infection [Unknown]

NARRATIVE: CASE EVENT DATE: 201903
